FAERS Safety Report 17442661 (Version 2)
Quarter: 2020Q1

REPORT INFORMATION
  Report Type: Report from Study
  Country: US (occurrence: US)
  Receive Date: 20200220
  Receipt Date: 20200312
  Transmission Date: 20200409
  Serious: No
  Sender: FDA-Public Use
  Company Number: NVSC2020US046127

PATIENT
  Age: 16 Year
  Sex: Female
  Weight: 59.9 kg

DRUGS (11)
  1. CELECOXIB. [Concomitant]
     Active Substance: CELECOXIB
     Indication: PRODUCT USED FOR UNKNOWN INDICATION
     Dosage: 100 MG
     Route: 065
  2. PIQRAY [Suspect]
     Active Substance: ALPELISIB
     Indication: VASCULAR MALFORMATION
     Dosage: 50 MG
     Route: 048
     Dates: start: 20200219, end: 20200303
  3. CHOLECALCIFEROL [Concomitant]
     Active Substance: CHOLECALCIFEROL
     Indication: PRODUCT USED FOR UNKNOWN INDICATION
     Dosage: 1000 U/ML
     Route: 065
  4. GLUCAGON. [Concomitant]
     Active Substance: GLUCAGON
     Indication: PRODUCT USED FOR UNKNOWN INDICATION
     Dosage: UNK UNK, PRN
     Route: 065
  5. MELATONIN [Concomitant]
     Active Substance: MELATONIN
     Indication: PRODUCT USED FOR UNKNOWN INDICATION
     Route: 065
  6. PIQRAY [Suspect]
     Active Substance: ALPELISIB
     Indication: PIK3CA RELATED OVERGROWTH SPECTRUM
     Dosage: 100 MG, QD
     Route: 048
     Dates: start: 20190304, end: 20200130
  7. GABAPENTIN. [Concomitant]
     Active Substance: GABAPENTIN
     Indication: PRODUCT USED FOR UNKNOWN INDICATION
     Dosage: 100 MG
     Route: 065
  8. INSULIN GLARGINE [Concomitant]
     Active Substance: INSULIN GLARGINE
     Indication: PRODUCT USED FOR UNKNOWN INDICATION
     Route: 065
  9. SERTRALINE [Concomitant]
     Active Substance: SERTRALINE HYDROCHLORIDE
     Indication: PRODUCT USED FOR UNKNOWN INDICATION
     Route: 065
  10. INSULIN [Concomitant]
     Active Substance: INSULIN NOS
     Indication: TYPE 1 DIABETES MELLITUS
     Route: 065
  11. INSULIN LISPRO [Concomitant]
     Active Substance: INSULIN LISPRO
     Indication: PRODUCT USED FOR UNKNOWN INDICATION
     Route: 065

REACTIONS (15)
  - Temperature intolerance [Not Recovered/Not Resolved]
  - Dizziness [Recovered/Resolved]
  - Anxiety [Recovering/Resolving]
  - Paraesthesia [Recovered/Resolved]
  - Depression [Recovering/Resolving]
  - Dry mouth [Recovered/Resolved]
  - Vertigo [Recovering/Resolving]
  - Paraesthesia [Not Recovered/Not Resolved]
  - Feeling abnormal [Recovered/Resolved]
  - Vertigo [Recovered/Resolved]
  - Hyperglycaemia [Not Recovered/Not Resolved]
  - Increased insulin requirement [Recovering/Resolving]
  - Feeling abnormal [Recovering/Resolving]
  - Fatigue [Recovered/Resolved]
  - Dizziness [Recovering/Resolving]

NARRATIVE: CASE EVENT DATE: 20190304
